FAERS Safety Report 23719282 (Version 1)
Quarter: 2024Q2

REPORT INFORMATION
  Report Type: Spontaneous
  Country: US (occurrence: US)
  Receive Date: 20240408
  Receipt Date: 20240408
  Transmission Date: 20240716
  Serious: No
  Sender: FDA-Public Use
  Company Number: US-Amarin Pharma  Inc-2024AMR000147

PATIENT
  Age: 46 Year
  Sex: Male
  Weight: 200 kg

DRUGS (4)
  1. VASCEPA [Suspect]
     Active Substance: ICOSAPENT ETHYL
     Indication: Blood triglycerides increased
     Route: 048
     Dates: start: 2021
  2. VASCEPA [Suspect]
     Active Substance: ICOSAPENT ETHYL
     Route: 048
     Dates: start: 2023
  3. ROSUVASTATIN [Concomitant]
     Active Substance: ROSUVASTATIN
     Indication: Blood cholesterol increased
  4. METOPROLOL [Concomitant]
     Active Substance: METOPROLOL

REACTIONS (6)
  - Prescribed underdose [Recovered/Resolved]
  - Therapeutic product effect incomplete [Recovered/Resolved]
  - Poor quality product administered [Unknown]
  - Product odour abnormal [Unknown]
  - Product colour issue [Unknown]
  - Product physical issue [Unknown]
